FAERS Safety Report 23422204 (Version 2)
Quarter: 2024Q1

REPORT INFORMATION
  Report Type: Spontaneous
  Country: RO (occurrence: RO)
  Receive Date: 20240119
  Receipt Date: 20240123
  Transmission Date: 20240409
  Serious: Yes (Other)
  Sender: FDA-Public Use
  Company Number: RO-009507513-2309ROU009645

PATIENT
  Age: 43 Year
  Sex: Female
  Weight: 78 kg

DRUGS (6)
  1. CYCLOPHOSPHAMIDE [Suspect]
     Active Substance: CYCLOPHOSPHAMIDE
     Indication: Triple negative breast cancer
     Dosage: 600 MILLIGRAM/SQ. METER, DAY 1
     Route: 042
     Dates: start: 20221228, end: 20230208
  2. CARBOPLATIN [Suspect]
     Active Substance: CARBOPLATIN
     Indication: Triple negative breast cancer
     Dosage: 5 AREA UNDER CURVE (AUC), DAY ONE, 21 DAYS, 4 CYCLES
     Route: 042
     Dates: start: 20221005, end: 20221221
  3. DOXORUBICIN [Suspect]
     Active Substance: DOXORUBICIN
     Indication: Triple negative breast cancer
     Dosage: 60 MILLIGRAM/SQ. METER, DAY 1
     Route: 042
     Dates: start: 20221228, end: 20230208
  4. PACLITAXEL [Suspect]
     Active Substance: PACLITAXEL
     Indication: Triple negative breast cancer
     Dosage: 80 MILLIGRAM PER SQUARE METRE, DAYS 1,8,15
     Route: 042
     Dates: start: 20221005, end: 20221221
  5. PEMBROLIZUMAB [Suspect]
     Active Substance: PEMBROLIZUMAB
     Indication: Triple negative breast cancer
     Dosage: 200 MILLIGRAM, 21 DAYS, 4 CYCLES DAY 1
     Route: 042
     Dates: start: 20221228, end: 20230208
  6. PEMBROLIZUMAB [Suspect]
     Active Substance: PEMBROLIZUMAB
     Dosage: 200 MILLIGRAM, 21 DAYS, 4 CYCLES DAY 1
     Route: 042
     Dates: start: 20221005, end: 20221221

REACTIONS (13)
  - Radiotherapy [Unknown]
  - Hypothyroidism [Recovered/Resolved]
  - Toxic cardiomyopathy [Unknown]
  - Febrile neutropenia [Recovered/Resolved]
  - Polyneuropathy [Recovered/Resolved]
  - Pneumonitis [Recovered/Resolved]
  - Alanine aminotransferase increased [Recovered/Resolved]
  - Stomatitis [Recovered/Resolved]
  - Blood thyroid stimulating hormone decreased [Recovered/Resolved]
  - Sinusitis [Recovered/Resolved]
  - Hepatic lesion [Unknown]
  - Hepatic steatosis [Unknown]
  - Aspartate aminotransferase increased [Recovered/Resolved]

NARRATIVE: CASE EVENT DATE: 20230101
